FAERS Safety Report 4338354-7 (Version None)
Quarter: 2004Q2

REPORT INFORMATION
  Report Type: 
  Country: None (occurrence: None)
  Receive Date: 20040409
  Receipt Date: 20031125
  Transmission Date: 20050107
  Serious: Yes (Death, Hospitalization)
  Sender: FDA-Public Use
  Company Number: 2003AP03245

PATIENT
  Age: 36 Year
  Sex: Male

DRUGS (14)
  1. IRESSA [Suspect]
     Indication: LUNG ADENOCARCINOMA
     Dosage: 250 MG DAILY PO
     Route: 048
     Dates: start: 20030516, end: 20030813
  2. IRESSA [Suspect]
     Indication: NON-SMALL CELL LUNG CANCER
     Dosage: 250 MG DAILY PO
     Route: 048
     Dates: start: 20030516, end: 20030813
  3. GEMCITABINE [Concomitant]
  4. CARBOPLATIN [Concomitant]
  5. TAXOTERE [Concomitant]
  6. ENOXAPARIN SODIUM [Concomitant]
  7. RADIOTHERAPY [Concomitant]
  8. MULTIVITAMIN ^LAPPE^ [Concomitant]
  9. ENDONE [Concomitant]
  10. ACETAMINOPHEN [Concomitant]
  11. NUROFEN [Concomitant]
  12. ACETAMINOPHEN W/ CODEINE [Concomitant]
  13. COLOXYL WITH SENNA [Concomitant]
  14. DEXAMETHASONE [Concomitant]

REACTIONS (9)
  - ADENOCARCINOMA [None]
  - INFECTION [None]
  - LYMPHANGITIS [None]
  - MALIGNANT NEOPLASM PROGRESSION [None]
  - METASTASES TO CENTRAL NERVOUS SYSTEM [None]
  - PLEURAL FIBROSIS [None]
  - PNEUMONIA [None]
  - RESPIRATORY FAILURE [None]
  - SKIN TOXICITY [None]
